FAERS Safety Report 5723739-4 (Version None)
Quarter: 2008Q2

REPORT INFORMATION
  Report Type: 
  Country: None (occurrence: None)
  Receive Date: 20080430
  Receipt Date: 20080425
  Transmission Date: 20081010
  Serious: Yes (Life-Threatening, Hospitalization)
  Sender: FDA-Public Use
  Company Number: JP-JNJFOC-20080407120

PATIENT
  Sex: Male
  Weight: 61 kg

DRUGS (11)
  1. ITRACONAZOLE [Suspect]
     Route: 041
  2. ITRACONAZOLE [Suspect]
     Indication: FEBRILE NEUTROPENIA
     Route: 041
  3. DORIPENEM [Suspect]
     Indication: SEPSIS
     Route: 042
  4. TARGOCID [Suspect]
     Indication: SEPSIS
     Route: 042
  5. OMEGACIN [Concomitant]
     Indication: SEPSIS
     Route: 042
  6. MINOCYCLINE HYDROCHLORIDE [Concomitant]
     Indication: SEPSIS
     Route: 042
  7. FILGRASTIM [Concomitant]
     Indication: NEUTROPENIA
     Route: 042
  8. CARBENIN [Concomitant]
     Indication: SEPSIS
     Route: 042
  9. MODACIN [Concomitant]
     Indication: SEPSIS
     Route: 042
  10. ALBUMIN (HUMAN) [Concomitant]
     Indication: HYPOKALAEMIA
     Route: 042
  11. POTASSIUM CHLORIDE [Concomitant]
     Indication: HYPOKALAEMIA
     Route: 042

REACTIONS (5)
  - HYPOALBUMINAEMIA [None]
  - HYPOKALAEMIA [None]
  - PLEURAL EFFUSION [None]
  - RENAL IMPAIRMENT [None]
  - SEPTIC SHOCK [None]
